FAERS Safety Report 8455230-9 (Version None)
Quarter: 2012Q2

REPORT INFORMATION
  Report Type: 
  Country: None (occurrence: None)
  Receive Date: 20120621
  Receipt Date: 20120614
  Transmission Date: 20120825
  Serious: Yes (Other)
  Sender: FDA-Public Use
  Company Number: JP-ASTELLAS-2012JP003304

PATIENT
  Sex: Female

DRUGS (12)
  1. CYMBALTA [Concomitant]
     Indication: DEPRESSION
     Dosage: 20 MG, TID
     Route: 048
     Dates: start: 20110817
  2. ARICEPT [Concomitant]
     Indication: DEMENTIA ALZHEIMER'S TYPE
     Dosage: 5 MG, UID/QD
     Route: 048
     Dates: start: 20111102
  3. ASPIRIN [Concomitant]
     Indication: CEREBRAL INFARCTION
     Dosage: 100 MG, UID/QD
     Route: 048
     Dates: start: 20110824
  4. MAGMITT [Concomitant]
     Indication: CONSTIPATION
     Dosage: 250 MG, TID
     Route: 048
     Dates: start: 20120208
  5. EVISTA [Concomitant]
     Route: 048
  6. SERMION [Concomitant]
     Indication: CEREBRAL INFARCTION
     Dosage: 5 MG, TID
     Route: 048
     Dates: start: 20110901
  7. CONIEL [Concomitant]
     Route: 048
  8. CELEBREX [Concomitant]
     Route: 048
  9. FAMOTIDINE [Concomitant]
     Route: 048
  10. VESICARE [Suspect]
     Indication: HYPERTONIC BLADDER
     Dosage: 5 MG, UID/QD
     Route: 048
     Dates: start: 20120208, end: 20120307
  11. ROZEREM [Concomitant]
     Indication: INSOMNIA
     Dosage: 8 MG, UID/QD
     Route: 048
     Dates: start: 20110901
  12. CRESTOR [Concomitant]
     Route: 048

REACTIONS (1)
  - DRUG ERUPTION [None]
